FAERS Safety Report 15850920 (Version 1)
Quarter: 2019Q1

REPORT INFORMATION
  Report Type: Spontaneous
  Country: US (occurrence: US)
  Receive Date: 20190121
  Receipt Date: 20190121
  Transmission Date: 20190417
  Serious: Yes (Other)
  Sender: FDA-Public Use
  Company Number: US-DENTSPLY-2019SCDP000030

PATIENT

DRUGS (2)
  1. LIDOCAINE. [Suspect]
     Active Substance: LIDOCAINE
     Indication: CLUSTER HEADACHE
     Dosage: 9 ML, INJECTION
  2. TRIAMCINOLONE                      /00031902/ [Concomitant]
     Active Substance: TRIAMCINOLONE ACETONIDE
     Indication: CLUSTER HEADACHE
     Dosage: 40 MG/ML, UNK

REACTIONS (1)
  - Osteonecrosis [Unknown]
